FAERS Safety Report 5943734-X (Version None)
Quarter: 2008Q4

REPORT INFORMATION
  Report Type: 
  Country: None (occurrence: None)
  Receive Date: 20081106
  Receipt Date: 20081103
  Transmission Date: 20090506
  Serious: Yes (Other)
  Sender: FDA-Public Use
  Company Number: SE-ASTRAZENECA-2008SE05121

PATIENT
  Age: 74 Year
  Sex: Female

DRUGS (8)
  1. ATACAND [Suspect]
     Indication: ESSENTIAL HYPERTENSION
     Route: 048
     Dates: start: 20080909, end: 20081001
  2. SPIRIVA [Suspect]
     Route: 055
     Dates: start: 20080908, end: 20081001
  3. SYMBICORT [Concomitant]
  4. NASONEX [Concomitant]
  5. VAGIFEM [Concomitant]
  6. IPREN [Concomitant]
  7. LECROLYN [Concomitant]
  8. DRUG NOT SHOWN [Concomitant]

REACTIONS (1)
  - VASCULITIS [None]
